FAERS Safety Report 10424447 (Version 2)
Quarter: 2014Q3

REPORT INFORMATION
  Report Type: Spontaneous
  Country: FR (occurrence: FR)
  Receive Date: 20140902
  Receipt Date: 20140911
  Transmission Date: 20150326
  Serious: Yes (Hospitalization)
  Sender: FDA-Public Use
  Company Number: FR-PFIZER INC-2014240276

PATIENT
  Age: 66 Year
  Sex: Female

DRUGS (14)
  1. PIRACETAM [Suspect]
     Active Substance: PIRACETAM
     Dosage: 1 DF, 2X/DAY
     Route: 048
     Dates: start: 20130814, end: 20130827
  2. TEGRETOL [Suspect]
     Active Substance: CARBAMAZEPINE
     Dosage: 400 MG, 2X/DAY
     Route: 048
  3. THERALENE [Concomitant]
     Active Substance: TRIMEPRAZINE
     Dosage: 4 %, UNK
  4. METFORMIN HYDROCHLORIDE. [Concomitant]
     Active Substance: METFORMIN HYDROCHLORIDE
  5. MODURETIC 5-50 [Suspect]
     Active Substance: AMILORIDE HYDROCHLORIDE\HYDROCHLOROTHIAZIDE
     Dosage: 1 DF, DAILY
     Route: 048
     Dates: start: 20130814, end: 20130827
  6. LOXEN [Suspect]
     Active Substance: NICARDIPINE HYDROCHLORIDE
     Dosage: 1 DF, 2X/DAY
     Route: 048
     Dates: start: 20130814, end: 20130827
  7. SERESTA [Suspect]
     Active Substance: OXAZEPAM
     Dosage: 10 MG, DAILY
     Route: 048
     Dates: end: 20130827
  8. ZOLPIDEM TARTRATE. [Concomitant]
     Active Substance: ZOLPIDEM TARTRATE
     Dosage: UNK
  9. ATARAX [Concomitant]
     Active Substance: HYDROXYZINE\HYDROXYZINE HYDROCHLORIDE
     Dosage: UNKNOWN DOSE (STRENGHT:25 MG)
  10. AXELER [Suspect]
     Active Substance: AMLODIPINE BESYLATE\OLMESARTAN MEDOXOMIL
     Indication: HYPERTENSION
     Dosage: 1 DF (20/5 MG ), 1X/DAY
     Route: 048
     Dates: end: 20130827
  11. SPIRONOLACTONE. [Suspect]
     Active Substance: SPIRONOLACTONE
     Indication: HYPERTENSION
     Dosage: 50 MG, DAILY
     Route: 048
     Dates: end: 20130827
  12. BETAHISTINE DIHYDROCHLORIDE [Suspect]
     Active Substance: BETAHISTINE
     Dosage: 1 DF, 2X/DAY
     Route: 048
     Dates: end: 20130827
  13. CORGARD [Concomitant]
     Active Substance: NADOLOL
     Dosage: UNKNOWN DOSE (STRENGHT 80 MG)
  14. RILMENIDINE PHOSPHATE [Concomitant]
     Active Substance: RILMENIDINE PHOSPHATE
     Indication: HYPERTENSION
     Dosage: UNK

REACTIONS (3)
  - Psychomotor skills impaired [Recovered/Resolved]
  - Hyponatraemia [Recovered/Resolved]
  - Somnolence [Recovered/Resolved]

NARRATIVE: CASE EVENT DATE: 20130827
